FAERS Safety Report 16953557 (Version 4)
Quarter: 2020Q1

REPORT INFORMATION
  Report Type: Spontaneous
  Country: US (occurrence: US)
  Receive Date: 20191023
  Receipt Date: 20200130
  Transmission Date: 20200409
  Serious: Yes (Hospitalization, Other)
  Sender: FDA-Public Use
  Company Number: US-SA-2019SA284552

PATIENT
  Age: 68 Year
  Sex: Female

DRUGS (1)
  1. PRALUENT [Suspect]
     Active Substance: ALIROCUMAB
     Indication: HYPERLIPIDAEMIA
     Dosage: 75 MG, QOW
     Dates: start: 20191002, end: 20191002

REACTIONS (10)
  - Pain [Unknown]
  - Infection [Unknown]
  - Diarrhoea [Unknown]
  - Abdominal pain [Unknown]
  - Influenza [Unknown]
  - Drug hypersensitivity [Unknown]
  - Coronary arterial stent insertion [Unknown]
  - Constipation [Unknown]
  - Feeding disorder [Unknown]
  - Haematochezia [Unknown]

NARRATIVE: CASE EVENT DATE: 2019
